FAERS Safety Report 17466645 (Version 2)
Quarter: 2023Q1

REPORT INFORMATION
  Report Type: Report from Study
  Country: IT (occurrence: IT)
  Receive Date: 20200227
  Receipt Date: 20230316
  Transmission Date: 20230417
  Serious: Yes (Hospitalization)
  Sender: FDA-Public Use
  Company Number: IT-BAYER-2020-023154

PATIENT
  Age: 38 Year
  Sex: Female

DRUGS (6)
  1. PROZAC [Suspect]
     Active Substance: FLUOXETINE HYDROCHLORIDE
     Indication: Weight decreased
     Dosage: UNK, UNKNOWN
     Route: 065
  2. CLORAZEPATE DIPOTASSIUM [Suspect]
     Active Substance: CLORAZEPATE DIPOTASSIUM
     Indication: Weight decreased
     Dosage: UNK UNK, UNKNOWN
     Route: 065
  3. TIRATRICOL [Suspect]
     Active Substance: TIRATRICOL
     Indication: Weight decreased
     Dosage: UNK UNK, UNKNOWN
     Route: 065
  4. PSEUDOEPHEDRINE [Suspect]
     Active Substance: PSEUDOEPHEDRINE
     Indication: Weight decreased
     Dosage: UNK, UNKNOWN
     Route: 065
  5. BUPROPION [Suspect]
     Active Substance: BUPROPION
     Indication: Weight decreased
     Dosage: UNK UNK, UNKNOWN
     Route: 065
  6. METFORMIN [Suspect]
     Active Substance: METFORMIN HYDROCHLORIDE
     Indication: Weight decreased
     Dosage: UNK UNK, UNKNOWN
     Route: 065

REACTIONS (2)
  - Acute coronary syndrome [Recovered/Resolved with Sequelae]
  - Off label use [Unknown]
